FAERS Safety Report 10571397 (Version 2)
Quarter: 2014Q4

REPORT INFORMATION
  Report Type: Spontaneous
  Country: FR (occurrence: FR)
  Receive Date: 20141107
  Receipt Date: 20141113
  Transmission Date: 20150529
  Serious: Yes (Hospitalization)
  Sender: FDA-Public Use
  Company Number: FR-ASTELLAS-2014US016881

PATIENT
  Age: 14 Year
  Sex: Male

DRUGS (1)
  1. ADVAGRAF [Suspect]
     Active Substance: TACROLIMUS
     Indication: LIVER TRANSPLANT
     Route: 048
     Dates: start: 20140813

REACTIONS (4)
  - Cell death [Not Recovered/Not Resolved]
  - Cholestasis [Not Recovered/Not Resolved]
  - Hepatitis E [Not Recovered/Not Resolved]
  - Product use issue [Unknown]
